FAERS Safety Report 13218001 (Version 2)
Quarter: 2018Q2

REPORT INFORMATION
  Report Type: Spontaneous
  Country: US (occurrence: US)
  Receive Date: 20170210
  Receipt Date: 20180418
  Transmission Date: 20180711
  Serious: Yes (Disabling)
  Sender: FDA-Public Use
  Company Number: US-ACORDA-ACO_122404_2016

PATIENT
  Age: 47 Year
  Sex: Female

DRUGS (4)
  1. AMPYRA [Suspect]
     Active Substance: DALFAMPRIDINE
     Indication: PRODUCT USED FOR UNKNOWN INDICATION
     Dosage: UNK
     Route: 065
  2. OCREVUS [Concomitant]
     Active Substance: OCRELIZUMAB
     Indication: PRODUCT USED FOR UNKNOWN INDICATION
     Dosage: UNK
     Route: 065
  3. TYSABRI [Suspect]
     Active Substance: NATALIZUMAB
     Indication: MULTIPLE SCLEROSIS
     Dosage: 300 MG, MONTHLY
     Route: 042
  4. PLEGRIDY [Concomitant]
     Active Substance: PEGINTERFERON BETA-1A
     Indication: PRODUCT USED FOR UNKNOWN INDICATION
     Dosage: UNK
     Route: 065

REACTIONS (19)
  - Central nervous system lesion [Unknown]
  - Anaemia [Unknown]
  - Hypoaesthesia [Unknown]
  - Vitamin B12 deficiency [Unknown]
  - Stress [Unknown]
  - Fatigue [Unknown]
  - Pollakiuria [Unknown]
  - Dysphagia [Unknown]
  - Muscular weakness [Unknown]
  - Peripheral coldness [Unknown]
  - Vision blurred [Unknown]
  - Herpes zoster [Unknown]
  - Gait inability [Unknown]
  - Vitamin D deficiency [Unknown]
  - Paraesthesia [Unknown]
  - Urinary incontinence [Unknown]
  - Condition aggravated [Unknown]
  - Asthenia [Not Recovered/Not Resolved]
  - Demyelination [Unknown]

NARRATIVE: CASE EVENT DATE: 201704
